FAERS Safety Report 8448132-5 (Version None)
Quarter: 2012Q2

REPORT INFORMATION
  Report Type: 
  Country: None (occurrence: None)
  Receive Date: 20120612
  Receipt Date: 20120605
  Transmission Date: 20120825
  Serious: No
  Sender: FDA-Public Use
  Company Number: 2012SP030653

PATIENT
  Age: 43 Year
  Sex: Male

DRUGS (1)
  1. SAPHRIS [Suspect]
     Indication: SCHIZOPHRENIA
     Dosage: ;SL
     Route: 060

REACTIONS (4)
  - SWOLLEN TONGUE [None]
  - SWELLING FACE [None]
  - ERYTHEMA [None]
  - VOMITING [None]
